FAERS Safety Report 16978918 (Version 1)
Quarter: 2019Q4

REPORT INFORMATION
  Report Type: Spontaneous
  Country: US (occurrence: US)
  Receive Date: 20191031
  Receipt Date: 20191031
  Transmission Date: 20200122
  Serious: No
  Sender: FDA-Public Use
  Company Number: US-PFIZER INC-2019450412

PATIENT
  Age: 61 Year
  Sex: Male

DRUGS (1)
  1. LYRICA [Suspect]
     Active Substance: PREGABALIN
     Indication: DERMATITIS
     Dosage: 75 MG, 1X/DAY(1 CAPSULE ONCE DAY / 7DAYS)
     Route: 048

REACTIONS (7)
  - Sunburn [Unknown]
  - Product use in unapproved indication [Unknown]
  - Feeling abnormal [Unknown]
  - Blister [Unknown]
  - Blood blister [Unknown]
  - Rash [Unknown]
  - Off label use [Unknown]
